FAERS Safety Report 8218473-5 (Version None)
Quarter: 2012Q1

REPORT INFORMATION
  Report Type: 
  Country: None (occurrence: None)
  Receive Date: 20120316
  Receipt Date: 20120316
  Transmission Date: 20120608
  Serious: Yes (Hospitalization)
  Sender: FDA-Public Use
  Company Number: None

PATIENT
  Sex: Male
  Weight: 102.0593 kg

DRUGS (21)
  1. ARTHROTEC [Concomitant]
  2. SYNTHROID [Concomitant]
  3. COLCRYS [Concomitant]
  4. TOPAMAX [Concomitant]
  5. NEURONTIN [Concomitant]
  6. ZOMETA [Concomitant]
  7. FISH OIL [Concomitant]
  8. DECADRON [Concomitant]
  9. BEVACIZUMAB 15MG/KG [Suspect]
     Indication: PROSTATE CANCER
     Dosage: 1500MG IVPB
     Route: 042
  10. COQ10 [Concomitant]
  11. RAD001 2.5 MG [Suspect]
     Indication: PROSTATE CANCER
     Dosage: 2.5 MG PO
     Route: 048
     Dates: start: 20120306, end: 20120312
  12. TAXOTERE [Suspect]
     Indication: PROSTATE CANCER
     Dosage: 160 MG IVPB
     Route: 042
     Dates: start: 20120305
  13. ASACOL [Concomitant]
  14. PROSCAR [Concomitant]
  15. PREDNISONE TAB [Concomitant]
  16. ADVAIR DISKUS 100/50 [Concomitant]
  17. AMBIEN [Concomitant]
  18. M.V.I. [Concomitant]
  19. LEXAPRO [Concomitant]
  20. LUPRON [Concomitant]
  21. MYCOM PM [Concomitant]

REACTIONS (1)
  - FEBRILE NEUTROPENIA [None]
